APPROVED DRUG PRODUCT: FLUOROURACIL
Active Ingredient: FLUOROURACIL
Strength: 50MG/ML
Dosage Form/Route: INJECTABLE;INJECTION
Application: A087792 | Product #001
Applicant: SPECTRUM PHARMACEUTICALS INC
Approved: Oct 13, 1982 | RLD: No | RS: No | Type: DISCN